FAERS Safety Report 7148857-8 (Version None)
Quarter: 2010Q4

REPORT INFORMATION
  Report Type: 
  Country: None (occurrence: None)
  Receive Date: 20101209
  Receipt Date: 20101201
  Transmission Date: 20110411
  Serious: Yes (Hospitalization)
  Sender: FDA-Public Use
  Company Number: FR-B.I. PHARMACEUTICALS,INC./RIDGEFIELD-2010-FF-00968FF

PATIENT
  Age: 56 Year
  Sex: Male
  Weight: 96 kg

DRUGS (6)
  1. PRADAXA [Suspect]
     Indication: KNEE ARTHROPLASTY
     Dosage: 220 MG
     Route: 048
     Dates: start: 20101008, end: 20101016
  2. DAFALGAN [Concomitant]
     Dosage: 3 G
  3. NEURONTIN [Concomitant]
     Dosage: 300 MG
  4. NEURONTIN [Concomitant]
     Dosage: 600 MG
  5. NEXIUM [Concomitant]
     Dosage: 20 MG
  6. RIVOTRIL [Concomitant]
     Dates: start: 20101007

REACTIONS (2)
  - HAEMARTHROSIS [None]
  - JOINT EFFUSION [None]
